FAERS Safety Report 9519197 (Version 1)
Quarter: 2013Q3

REPORT INFORMATION
  Report Type: Spontaneous
  Country: US (occurrence: None)
  Receive Date: 20130911
  Receipt Date: 20130911
  Transmission Date: 20140515
  Serious: Yes (Hospitalization)
  Sender: FDA-Public Use
  Company Number: None

PATIENT
  Age: 66 Year
  Sex: Male
  Weight: 104.33 kg

DRUGS (1)
  1. MELOXICAM [Suspect]
     Dosage: 1 PILL, ONCE DAILY
     Route: 048
     Dates: end: 20120201

REACTIONS (1)
  - Renal failure [None]
